FAERS Safety Report 8763287 (Version 1)
Quarter: 2012Q4

REPORT INFORMATION
  Report Type: 
  Country: US (occurrence: US)
  Receive Date: 20120831
  Receipt Date: 20120831
  Transmission Date: 20130627
  Serious: No
  Sender: FDA-Public Use
  Company Number: US-PFIZER INC-2012209978

PATIENT
  Age: 74 Year
  Sex: Female

DRUGS (2)
  1. ADVIL [Suspect]
     Dosage: UNK
  2. LETAIRIS [Suspect]
     Dosage: 5 mg
     Route: 048
     Dates: start: 20110306

REACTIONS (3)
  - Arthritis [Unknown]
  - Poor quality sleep [Unknown]
  - Dizziness [Unknown]
